FAERS Safety Report 21048839 (Version 1)
Quarter: 2022Q3

REPORT INFORMATION
  Report Type: Spontaneous
  Country: US (occurrence: None)
  Receive Date: 20220706
  Receipt Date: 20220706
  Transmission Date: 20221026
  Serious: Yes (Disabling)
  Sender: FDA-Public Use
  Company Number: None

PATIENT
  Age: 47 Year
  Sex: Female
  Weight: 72.57 kg

DRUGS (3)
  1. ZOLPIDEM [Suspect]
     Active Substance: ZOLPIDEM TARTRATE
     Dosage: FREQUENCY : AT BEDTIME;?
     Route: 048
  2. ALPRAZOLAM [Suspect]
     Active Substance: ALPRAZOLAM
  3. METOPROLOL SUCCINATE [Suspect]
     Active Substance: METOPROLOL SUCCINATE

REACTIONS (8)
  - Fatigue [None]
  - Malaise [None]
  - Asthenia [None]
  - Asthenia [None]
  - Dizziness [None]
  - Headache [None]
  - Migraine [None]
  - Product commingling [None]

NARRATIVE: CASE EVENT DATE: 20220101
